FAERS Safety Report 11442709 (Version 2)
Quarter: 2015Q4

REPORT INFORMATION
  Report Type: Spontaneous
  Country: US (occurrence: US)
  Receive Date: 20150901
  Receipt Date: 20151002
  Transmission Date: 20160304
  Serious: Yes (Other)
  Sender: FDA-Public Use
  Company Number: US-BAYER-2015-408298

PATIENT
  Age: 34 Year
  Sex: Female

DRUGS (1)
  1. MIRENA [Suspect]
     Active Substance: LEVONORGESTREL
     Indication: CONTRACEPTION
     Dosage: 20 MCG/24HR, CONT
     Route: 015
     Dates: start: 20141211, end: 20150922

REACTIONS (6)
  - Genital haemorrhage [None]
  - Device use error [None]
  - Abdominal pain lower [None]
  - Device issue [None]
  - Device expulsion [None]
  - Unintentional medical device removal [None]

NARRATIVE: CASE EVENT DATE: 20141211
